FAERS Safety Report 22857830 (Version 2)
Quarter: 2023Q4

REPORT INFORMATION
  Report Type: Spontaneous
  Country: BD (occurrence: BD)
  Receive Date: 20230823
  Receipt Date: 20231016
  Transmission Date: 20240110
  Serious: Yes (Death, Other)
  Sender: FDA-Public Use
  Company Number: BD-BEH-2023162497

PATIENT
  Age: 70 Year
  Sex: Female

DRUGS (1)
  1. ALBURX [Suspect]
     Active Substance: ALBUMIN HUMAN
     Route: 065

REACTIONS (5)
  - Death [Fatal]
  - Therapy cessation [Fatal]
  - Counterfeit product administered [Unknown]
  - Asthenia [Unknown]
  - Therapy cessation [Unknown]

NARRATIVE: CASE EVENT DATE: 20230809
